FAERS Safety Report 5716058-3 (Version None)
Quarter: 2008Q2

REPORT INFORMATION
  Report Type: 
  Country: None (occurrence: None)
  Receive Date: 20080423
  Receipt Date: 20080423
  Transmission Date: 20081010
  Serious: Yes (Hospitalization)
  Sender: FDA-Public Use
  Company Number: None

PATIENT
  Age: 61 Year
  Sex: Female
  Weight: 110.2241 kg

DRUGS (1)
  1. AMIODARONE HCL [Suspect]
     Indication: ATRIAL FIBRILLATION
     Dosage: 450MG/3ML IV DRIP
     Route: 041
     Dates: start: 20080403, end: 20080403

REACTIONS (2)
  - ECCHYMOSIS [None]
  - INFUSION SITE PHLEBITIS [None]
